FAERS Safety Report 6540462-7 (Version None)
Quarter: 2010Q1

REPORT INFORMATION
  Report Type: 
  Country: None (occurrence: None)
  Receive Date: 20100113
  Receipt Date: 20100107
  Transmission Date: 20100710
  Serious: Yes (Other)
  Sender: FDA-Public Use
  Company Number: 2009SP043155

PATIENT
  Age: 15 Month
  Sex: Male

DRUGS (1)
  1. COPPERTONE KIDS (COPPERTONE         (ACTIVES UNKNOWN) ) [Suspect]
     Dosage: ONCE

REACTIONS (1)
  - ANAPHYLACTIC REACTION [None]
